FAERS Safety Report 8799029 (Version 1)
Quarter: 2012Q4

REPORT INFORMATION
  Report Type: 
  Country: NL (occurrence: NL)
  Receive Date: 20120920
  Receipt Date: 20120920
  Transmission Date: 20130627
  Serious: Yes (Other)
  Sender: FDA-Public Use
  Company Number: PHHY2012NL080988

PATIENT
  Age: 71 Year
  Sex: Female

DRUGS (8)
  1. NITROFURANTOIN [Suspect]
     Indication: CYSTITIS
     Dosage: 50 mg, UNK
  2. ACENOCOUMAROL [Interacting]
  3. FENTANYL [Concomitant]
  4. BISOPROLOL [Concomitant]
  5. BUMETANIDE [Concomitant]
  6. PERINDOPRIL [Concomitant]
  7. HYDROKININE [Concomitant]
  8. NITROGLYCERIN [Concomitant]

REACTIONS (5)
  - Cutaneous vasculitis [Recovered/Resolved]
  - Purpura [Recovered/Resolved]
  - Haematoma [Recovered/Resolved]
  - International normalised ratio increased [Recovered/Resolved]
  - Drug interaction [Unknown]
